FAERS Safety Report 9449976 (Version 1)
Quarter: 2013Q3

REPORT INFORMATION
  Report Type: Report from Study
  Country: BR (occurrence: BR)
  Receive Date: 20130809
  Receipt Date: 20130809
  Transmission Date: 20140515
  Serious: Yes (Other)
  Sender: FDA-Public Use
  Company Number: PHHY2013BR084459

PATIENT
  Age: 41 Year
  Sex: Male

DRUGS (6)
  1. MYCOPHENOLIC ACID [Suspect]
     Indication: IMMUNOSUPPRESSION
     Dosage: 720 MG, QD
  2. MYCOPHENOLIC ACID [Suspect]
     Dosage: 1440 MG, QD
  3. EVEROLIMUS [Suspect]
     Dosage: 0.75 MG, 12/12 HOUR
  4. THYMOGLOBULIN [Concomitant]
     Indication: IMMUNOSUPPRESSION
     Dosage: UNK UKN, 4.5 MG/KG
  5. TACROLIMUS [Concomitant]
     Indication: IMMUNOSUPPRESSION
     Dosage: UNK UKN, 0.07 MG/KG
  6. CORTICOSTEROIDS [Concomitant]
     Indication: IMMUNOSUPPRESSION

REACTIONS (10)
  - Complications of transplanted kidney [Unknown]
  - Nephropathy toxic [Unknown]
  - Renal tubular necrosis [Unknown]
  - Arteriosclerosis [Unknown]
  - Glomerulosclerosis [Unknown]
  - Renal impairment [Unknown]
  - Blood creatinine increased [Unknown]
  - Blood urea increased [Unknown]
  - Proteinuria [Unknown]
  - Urine protein/creatinine ratio increased [Unknown]
